FAERS Safety Report 4579343-7 (Version None)
Quarter: 2005Q1

REPORT INFORMATION
  Report Type: 
  Country: None (occurrence: None)
  Receive Date: 20050209
  Receipt Date: 20050128
  Transmission Date: 20050727
  Serious: Yes (Hospitalization, Other)
  Sender: FDA-Public Use
  Company Number: 2004097444

PATIENT
  Age: 18 Year
  Sex: Female
  Weight: 83.0083 kg

DRUGS (18)
  1. DEPO-PROVERA [Suspect]
     Indication: MENSTRUATION IRREGULAR
     Dosage: 150 MG (150 MG, EVERY 12 WEEKS, FIRST INJECTION), INTRAMUSCULAR
     Route: 030
     Dates: start: 19980330, end: 19980330
  2. DEPO-PROVERA [Suspect]
     Indication: MENSTRUATION IRREGULAR
     Dosage: 150 MG (150 MG, EVERY 12 WEEKS, FIRST INJECTION), INTRAMUSCULAR
     Route: 030
     Dates: start: 20020828, end: 20020828
  3. ATENOLOL [Concomitant]
  4. METRONIDAZOLE [Concomitant]
  5. IBUPROFEN (IBUPROFIN) [Concomitant]
  6. MAGNESIUM HYDROXIDE (MAGNESIUM HYDROXIDE) [Concomitant]
  7. AZITHROMYCIN [Concomitant]
  8. CARBAMAZEPINE [Concomitant]
  9. MUPIROCIN (MUPIROCIN) [Concomitant]
  10. DICLOXACILLIN [Concomitant]
  11. EUGYNON (ETHINYLESTRADIOL, LEVONORGESTREL) [Concomitant]
  12. DOCUSATE SODIUM (DOCUSATE SODIUM) [Concomitant]
  13. METAMUCIL-2 [Concomitant]
  14. ACETAMINOPHEN [Concomitant]
  15. DYAZIDE [Concomitant]
  16. PANTOPRAZOLE (PANTOPRAZOLE) [Concomitant]
  17. ESOMEPRAZOLE (ESOMEPRAZOLE) [Concomitant]
  18. EXCEDRIN /USA/ (ACETYLSALICYLIC ACID, CAFFEINE, PARACETAMOL, SALICYLAM [Concomitant]

REACTIONS (1)
  - OSTEONECROSIS [None]
